FAERS Safety Report 18399359 (Version 1)
Quarter: 2020Q4

REPORT INFORMATION
  Report Type: Spontaneous
  Country: US (occurrence: US)
  Receive Date: 20201019
  Receipt Date: 20201019
  Transmission Date: 20210114
  Serious: No
  Sender: FDA-Public Use
  Company Number: US-PFIZER INC-2020400792

PATIENT
  Age: 72 Year
  Sex: Female
  Weight: 83.46 kg

DRUGS (1)
  1. IBRANCE [Suspect]
     Active Substance: PALBOCICLIB
     Indication: BREAST CANCER METASTATIC
     Dosage: 100 MG, CYCLIC (100MG TABLET ONCE A DAY BY MOUTH, AT 9 AM/LAST WEEK OF HER IBRANCE CYCLE)
     Route: 048

REACTIONS (1)
  - Tumour marker increased [Unknown]
